FAERS Safety Report 8621865-3 (Version None)
Quarter: 2012Q3

REPORT INFORMATION
  Report Type: 
  Country: None (occurrence: None)
  Receive Date: 20120822
  Receipt Date: 20120822
  Transmission Date: 20120928
  Serious: Yes (Hospitalization)
  Sender: FDA-Public Use
  Company Number: None

PATIENT
  Age: 66 Year
  Sex: Male
  Weight: 81.5 kg

DRUGS (2)
  1. CILOSTAZOL [Suspect]
     Indication: CORONARY ARTERIAL STENT INSERTION
     Dosage: BID
     Dates: start: 20120210
  2. TICAGRELOR [Suspect]
     Indication: CORONARY ARTERIAL STENT INSERTION
     Dosage: MG BID PO
     Route: 048
     Dates: start: 20120211, end: 20120223

REACTIONS (3)
  - PALPITATIONS [None]
  - DYSPNOEA [None]
  - CONDITION AGGRAVATED [None]
